FAERS Safety Report 17760668 (Version 18)
Quarter: 2022Q4

REPORT INFORMATION
  Report Type: Report from Study
  Country: US (occurrence: US)
  Receive Date: 20200508
  Receipt Date: 20221004
  Transmission Date: 20230112
  Serious: Yes (Other)
  Sender: FDA-Public Use
  Company Number: US-BIOVITRUM-2020US2124

PATIENT
  Sex: Male

DRUGS (11)
  1. KINERET [Suspect]
     Active Substance: ANAKINRA
     Indication: Rheumatoid arthritis
     Dates: start: 20200421
  2. KINERET [Suspect]
     Active Substance: ANAKINRA
  3. KINERET [Suspect]
     Active Substance: ANAKINRA
  4. METOLAZONE [Concomitant]
     Active Substance: METOLAZONE
  5. SULFASALAZINE [Concomitant]
     Active Substance: SULFASALAZINE
  6. WARFARIN [Concomitant]
     Active Substance: WARFARIN
  7. ALLOPURINOL [Concomitant]
     Active Substance: ALLOPURINOL
  8. LISINOPRIL [Concomitant]
     Active Substance: LISINOPRIL
  9. METOPROLOL [Concomitant]
     Active Substance: METOPROLOL
  10. FUROSEMIDE [Concomitant]
     Active Substance: FUROSEMIDE
  11. Butanamide [Concomitant]

REACTIONS (22)
  - Cellulitis [Unknown]
  - Balance disorder [Unknown]
  - Confusional state [Unknown]
  - Peripheral swelling [Unknown]
  - Oedema peripheral [Unknown]
  - Irritability [Unknown]
  - Disorganised speech [Unknown]
  - Dysphemia [Unknown]
  - Dysarthria [Unknown]
  - Thinking abnormal [Unknown]
  - Pain in extremity [Unknown]
  - Arthralgia [Not Recovered/Not Resolved]
  - Chills [Unknown]
  - Gait disturbance [Unknown]
  - Loss of personal independence in daily activities [Unknown]
  - Arthropathy [Unknown]
  - Injection site erythema [Unknown]
  - Injection site pruritus [Unknown]
  - Headache [Recovered/Resolved]
  - Product dose omission issue [Unknown]
  - Drug ineffective [Unknown]
  - Product dose omission in error [Unknown]
